FAERS Safety Report 9692493 (Version 2)
Quarter: 2013Q4

REPORT INFORMATION
  Report Type: Report from Study
  Country: US (occurrence: US)
  Receive Date: 20131118
  Receipt Date: 20131118
  Transmission Date: 20140711
  Serious: Yes (Death, Other)
  Sender: FDA-Public Use
  Company Number: US-ROCHE-767749

PATIENT
  Sex: 0

DRUGS (3)
  1. RITUXIMAB [Suspect]
     Indication: NON-HODGKIN^S LYMPHOMA
     Dosage: FOR 4 WEEKS THEN EVERY 8 WEEK FOR 4 ADDITIONAL DOSES FOR A TOTAL OF 8 DOSES OVER 9 MONTHS
     Route: 042
  2. EPRATUZUMAB [Suspect]
     Indication: NON-HODGKIN^S LYMPHOMA
     Dosage: FROM WEEK 2
     Route: 065
  3. ACETAMINOPHEN [Concomitant]
     Route: 048

REACTIONS (19)
  - Endocarditis [Fatal]
  - Renal failure [Fatal]
  - Device related sepsis [Fatal]
  - Thrombosis [Unknown]
  - Myocardial infarction [Unknown]
  - Cytokine storm [Unknown]
  - Lung disorder [Unknown]
  - Dyspnoea [Unknown]
  - Hypoxia [Unknown]
  - Fatigue [Unknown]
  - Lymph node pain [Unknown]
  - Nausea [Unknown]
  - Diarrhoea [Unknown]
  - Muscular weakness [Unknown]
  - Neutropenia [Unknown]
  - Renal cancer [Unknown]
  - Colon cancer [Unknown]
  - Dyspepsia [Unknown]
  - Vomiting [Unknown]
